FAERS Safety Report 10422761 (Version 4)
Quarter: 2015Q2

REPORT INFORMATION
  Report Type: Spontaneous
  Country: JP (occurrence: JP)
  Receive Date: 20140902
  Receipt Date: 20150626
  Transmission Date: 20150821
  Serious: Yes (Hospitalization, Other)
  Sender: FDA-Public Use
  Company Number: JP-UCBSA-2014009482

PATIENT
  Age: 6 Year
  Sex: Male

DRUGS (5)
  1. KEPPRA [Suspect]
     Active Substance: LEVETIRACETAM
     Indication: PARTIAL SEIZURES
     Dosage: 250 MG, ONCE DAILY (QD)
     Route: 048
     Dates: start: 20140303, end: 20140427
  2. KEPPRA [Suspect]
     Active Substance: LEVETIRACETAM
     Dosage: 400 MG, ONCE DAILY (QD) DRY SYRUP 50%
     Route: 048
     Dates: start: 20140723, end: 20140729
  3. SODIUM VALPROATE [Concomitant]
     Active Substance: VALPROATE SODIUM
     Indication: PRODUCT USED FOR UNKNOWN INDICATION
     Dosage: 200 MG, UNK
     Route: 048
     Dates: start: 20130815, end: 20140128
  4. SODIUM VALPROATE [Concomitant]
     Active Substance: VALPROATE SODIUM
     Dosage: 320 MG/DAY TO 400MG PER DAY
     Route: 048
     Dates: start: 20140129, end: 20140728
  5. KEPPRA [Suspect]
     Active Substance: LEVETIRACETAM
     Indication: PARTIAL SEIZURES
     Dosage: 250 MG, ONCE DAILY (QD) DRY SYRUP 50%
     Route: 048
     Dates: start: 20140428, end: 20140722

REACTIONS (2)
  - Status epilepticus [Recovered/Resolved]
  - Restlessness [Recovered/Resolved]

NARRATIVE: CASE EVENT DATE: 20140722
